FAERS Safety Report 6526268-3 (Version None)
Quarter: 2009Q4

REPORT INFORMATION
  Report Type: 
  Country: None (occurrence: None)
  Receive Date: 20091228
  Receipt Date: 20091216
  Transmission Date: 20100525
  Serious: Yes (Other)
  Sender: FDA-Public Use
  Company Number: 234936K09USA

PATIENT
  Age: 58 Year
  Sex: Female

DRUGS (2)
  1. REBIF [Suspect]
     Indication: MULTIPLE SCLEROSIS
     Dosage: 44 MCG, 3 IN 1 WEEKS, SUBCUTANEOSU
     Route: 058
     Dates: start: 20080619, end: 20090430
  2. TROPOL XL    (METOPROLOL SUCCINATE) [Concomitant]

REACTIONS (1)
  - OVARIAN CANCER RECURRENT [None]
